FAERS Safety Report 6674756-1 (Version None)
Quarter: 2010Q2

REPORT INFORMATION
  Report Type: 
  Country: None (occurrence: None)
  Receive Date: 20100409
  Receipt Date: 20100330
  Transmission Date: 20101027
  Serious: Yes (Hospitalization)
  Sender: FDA-Public Use
  Company Number: DE-ABBOTT-10P-062-0633690-00

PATIENT
  Sex: Female

DRUGS (3)
  1. HUMIRA [Suspect]
     Indication: PSORIASIS
     Dates: start: 20100218
  2. HUMIRA [Suspect]
     Indication: CROHN'S DISEASE
     Dates: end: 20100304
  3. METHOTREXATE [Concomitant]
     Indication: DRUG USE FOR UNKNOWN INDICATION

REACTIONS (5)
  - ASTHENIA [None]
  - DRUG INTOLERANCE [None]
  - ERYTHEMA [None]
  - PAIN [None]
  - RASH PUSTULAR [None]
